FAERS Safety Report 25988632 (Version 1)
Quarter: 2025Q4

REPORT INFORMATION
  Report Type: Spontaneous
  Country: EU (occurrence: EU)
  Receive Date: 20251103
  Receipt Date: 20251103
  Transmission Date: 20260117
  Serious: Yes (Life-Threatening, Other)
  Sender: AUROBINDO
  Company Number: EU-AFSSAPS-CN2025001134

PATIENT
  Age: 24 Year
  Sex: Male
  Weight: 45 kg

DRUGS (5)
  1. VALPROIC ACID [Suspect]
     Active Substance: VALPROIC ACID
     Indication: Product used for unknown indication
     Dosage: 16 GRAM (1 TOTAL) (16G INSTEAD OF 500MG)
     Route: 048
     Dates: start: 20250915, end: 20250915
  2. DOLIPRANE [Concomitant]
     Active Substance: ACETAMINOPHEN
     Indication: Pain
     Dosage: 1 DOSAGE FORM, AS NECESSARY (1 SACHET EVERY 6 HOURS IN CASE OF PAIN)
     Route: 048
  3. CHOLECALCIFEROL [Concomitant]
     Active Substance: CHOLECALCIFEROL
     Indication: Vitamin D deficiency
     Dosage: 50000 INTERNATIONAL UNIT (1 MNTH) (1 LIGHTBULB PER MONTH)
     Route: 048
  4. POLYETHYLENE GLYCOL 4000 [Concomitant]
     Active Substance: POLYETHYLENE GLYCOL 4000
     Indication: Constipation
     Dosage: 4 GRAM, ONCE A DAY (1 SACHET AT LUNCHTIME)
     Route: 048
  5. TESTOSTERONE [Concomitant]
     Active Substance: TESTOSTERONE
     Indication: Hypogonadism
     Dosage: 125 MILLIGRAM (3 WEEK) (1/2 AMPOULE EVERY 3 WEEKS)
     Route: 030

REACTIONS (4)
  - Coma [Recovered/Resolved]
  - Ventricular dysfunction [Recovered/Resolved]
  - Incorrect dose administered [Recovered/Resolved]
  - Accidental overdose [Recovered/Resolved]

NARRATIVE: CASE EVENT DATE: 20250915
